FAERS Safety Report 8553942 (Version 4)
Quarter: 2012Q4

REPORT INFORMATION
  Report Type: 
  Country: US (occurrence: US)
  Receive Date: 20120509
  Receipt Date: 20120828
  Transmission Date: 20130627
  Serious: Yes (Other)
  Sender: FDA-Public Use
  Company Number: US-NOVOPROD-350749

PATIENT
  Age: 14 Year
  Sex: Male
  Weight: 48.07 kg

DRUGS (5)
  1. NORDITROPIN FLEXPRO 6.7 MG/ML [Suspect]
     Indication: DWARFISM
     Dosage: 0.8 mg, qd
     Route: 058
     Dates: start: 200607, end: 20120210
  2. NORDITROPIN FLEXPRO 6.7 MG/ML [Suspect]
     Dosage: 0.7 mg, qd
     Route: 058
     Dates: start: 20120501
  3. TUMS                               /00193601/ [Concomitant]
     Indication: MINERAL SUPPLEMENTATION
     Dosage: UNKNOWN
     Route: 065
  4. MULTIVITAMIN                       /00097801/ [Concomitant]
     Indication: PRODUCT USED FOR UNKNOWN INDICATION
     Dosage: UNKNOWN
     Route: 065
  5. HUMIRA [Concomitant]
     Indication: PRODUCT USED FOR UNKNOWN INDICATION

REACTIONS (1)
  - Fibrous dysplasia of bone [Recovering/Resolving]
